FAERS Safety Report 7842456-8 (Version None)
Quarter: 2011Q4

REPORT INFORMATION
  Report Type: 
  Country: None (occurrence: None)
  Receive Date: 20111025
  Receipt Date: 20111021
  Transmission Date: 20120403
  Serious: Yes (Death, Hospitalization)
  Sender: FDA-Public Use
  Company Number: PHEH2011US02565

PATIENT
  Sex: Female

DRUGS (1)
  1. RECLAST [Suspect]
     Dosage: 5 MG
     Route: 042

REACTIONS (10)
  - DIABETES MELLITUS [None]
  - COMPRESSION FRACTURE [None]
  - OSTEOPOROSIS [None]
  - STAPHYLOCOCCAL INFECTION [None]
  - SJOGREN'S SYNDROME [None]
  - RESTRICTIVE PULMONARY DISEASE [None]
  - ACUTE RESPIRATORY FAILURE [None]
  - CHRONIC OBSTRUCTIVE PULMONARY DISEASE [None]
  - CORONARY ARTERY DISEASE [None]
  - DRUG DEPENDENCE [None]
